FAERS Safety Report 9964093 (Version 1)
Quarter: 2014Q1

REPORT INFORMATION
  Report Type: Report from Study
  Country: US (occurrence: US)
  Receive Date: 20140305
  Receipt Date: 20140305
  Transmission Date: 20141002
  Serious: Yes (Other)
  Sender: FDA-Public Use
  Company Number: US-GILEAD-2014-0095862

PATIENT
  Sex: Female

DRUGS (1)
  1. RANOLAZINE [Suspect]
     Indication: ANGINA PECTORIS
     Dosage: 1000 MG, UNK
     Route: 065

REACTIONS (8)
  - Diabetes mellitus [Unknown]
  - Blood glucose increased [Unknown]
  - Hypertension [Unknown]
  - Blood pressure increased [Unknown]
  - Osteoarthritis [Unknown]
  - Hypothyroidism [Unknown]
  - Malaise [Unknown]
  - Fatigue [Unknown]
